FAERS Safety Report 10269640 (Version 2)
Quarter: 2014Q3

REPORT INFORMATION
  Report Type: Report from Study
  Country: GB (occurrence: None)
  Receive Date: 20140625
  Receipt Date: 20140827
  Transmission Date: 20150326
  Serious: Yes (Hospitalization)
  Sender: FDA-Public Use
  Company Number: 140210

PATIENT
  Age: 68 Year
  Sex: Male
  Weight: 113.4 kg

DRUGS (15)
  1. VANTAS (HISTRELIN) [Concomitant]
  2. ENZALUTAMIDE VS. BICALUTAMIDE (MDV3100) [Concomitant]
  3. CALCIUM [Concomitant]
     Active Substance: CALCIUM
  4. METOPROLOL TARTATE [Concomitant]
     Active Substance: METOPROLOL TARTRATE
  5. PLAVIX [Concomitant]
     Active Substance: CLOPIDOGREL BISULFATE
  6. BUSPIRONE [Concomitant]
     Active Substance: BUSPIRONE HYDROCHLORIDE
  7. GOLYTELY [Suspect]
     Active Substance: POLYETHYLENE GLYCOL 3350\POTASSIUM CHLORIDE\SODIUM BICARBONATE\SODIUM CHLORIDE\SODIUM SULFATE ANHYDROUS
     Indication: COLONOSCOPY
     Route: 048
  8. DIGOXIN(DIGOXIN) [Concomitant]
  9. PRAVASTATIN SODIUM. [Concomitant]
     Active Substance: PRAVASTATIN SODIUM
  10. PROTONIX (PANTOPRAZOLE) [Concomitant]
  11. ASPIRIN. [Concomitant]
     Active Substance: ASPIRIN
  12. DIOVAN [Concomitant]
     Active Substance: VALSARTAN
  13. ZANTAC(RANITIDINE) [Concomitant]
  14. MULTIVITAMIN [Concomitant]
     Active Substance: VITAMINS
  15. NITROGLYCERIN. [Concomitant]
     Active Substance: NITROGLYCERIN

REACTIONS (14)
  - Cardiac ventricular thrombosis [None]
  - Pulmonary hypertension [None]
  - Blood potassium decreased [None]
  - Ventricular extrasystoles [None]
  - Tricuspid valve incompetence [None]
  - Cardiac failure congestive [None]
  - Chest pain [None]
  - Anxiety [None]
  - Mitral valve incompetence [None]
  - Pulmonary valve incompetence [None]
  - Cardioactive drug level decreased [None]
  - Blood pressure increased [None]
  - Pulmonary oedema [None]
  - Lymphadenopathy [None]

NARRATIVE: CASE EVENT DATE: 20131126
